FAERS Safety Report 11410232 (Version 1)
Quarter: 2015Q3

REPORT INFORMATION
  Report Type: Spontaneous
  Country: JP (occurrence: JP)
  Receive Date: 20150824
  Receipt Date: 20150824
  Transmission Date: 20151125
  Serious: Yes (Other)
  Sender: FDA-Public Use
  Company Number: JP-JNJFOC-20150815795

PATIENT
  Age: 74 Year
  Sex: Female

DRUGS (6)
  1. TRAMAL [Suspect]
     Active Substance: TRAMADOL
     Indication: NEURALGIA
     Route: 048
     Dates: start: 20141208, end: 20141213
  2. LYRICA [Interacting]
     Active Substance: PREGABALIN
     Indication: NEURALGIA
     Route: 048
     Dates: start: 20141227, end: 20141227
  3. CELECOX [Concomitant]
     Active Substance: CELECOXIB
     Indication: PRODUCT USED FOR UNKNOWN INDICATION
     Route: 065
     Dates: start: 20141208, end: 20141213
  4. TRAMAL [Suspect]
     Active Substance: TRAMADOL
     Indication: NEURALGIA
     Route: 048
     Dates: start: 20141227, end: 20141227
  5. TRAMAL [Suspect]
     Active Substance: TRAMADOL
     Indication: PERIARTHRITIS
     Route: 048
     Dates: start: 20141208, end: 20141213
  6. TRAMAL [Suspect]
     Active Substance: TRAMADOL
     Indication: PERIARTHRITIS
     Route: 048
     Dates: start: 20141227, end: 20141227

REACTIONS (2)
  - Loss of consciousness [Recovered/Resolved]
  - Drug interaction [Recovered/Resolved]

NARRATIVE: CASE EVENT DATE: 20141227
